FAERS Safety Report 7554832-1 (Version None)
Quarter: 2011Q2

REPORT INFORMATION
  Report Type: 
  Country: None (occurrence: None)
  Receive Date: 20110617
  Receipt Date: 20110615
  Transmission Date: 20111010
  Serious: Yes (Hospitalization)
  Sender: FDA-Public Use
  Company Number: SI-MERCK-1106USA01885

PATIENT
  Age: 76 Year
  Sex: Male

DRUGS (13)
  1. ULTOP [Concomitant]
     Route: 048
  2. DORETA [Concomitant]
     Route: 048
  3. ASPIRIN [Concomitant]
     Route: 048
  4. LANITOP [Concomitant]
     Route: 065
  5. PLAVIX [Concomitant]
     Route: 048
  6. PRIMOTREN [Concomitant]
     Route: 048
  7. VYTORIN [Suspect]
     Indication: HYPERLIPIDAEMIA
     Route: 048
     Dates: start: 20110418, end: 20110502
  8. SPIRIVA [Concomitant]
     Route: 048
  9. FOSTER [Concomitant]
     Route: 065
  10. PROCORALAN [Concomitant]
     Route: 048
  11. PREDUCTAL [Concomitant]
     Route: 048
  12. ZOLPIDEM [Concomitant]
     Route: 048
  13. OMNIC [Concomitant]
     Route: 048

REACTIONS (4)
  - GAMMA-GLUTAMYLTRANSFERASE INCREASED [None]
  - TRANSAMINASES INCREASED [None]
  - MYOGLOBIN BLOOD INCREASED [None]
  - MYALGIA [None]
